FAERS Safety Report 6721854-X (Version None)
Quarter: 2010Q2

REPORT INFORMATION
  Report Type: 
  Country: None (occurrence: None)
  Receive Date: 20100512
  Receipt Date: 20100428
  Transmission Date: 20101027
  Serious: Yes (Life-Threatening)
  Sender: FDA-Public Use
  Company Number: PHHY2010JP28860

PATIENT
  Sex: Female
  Weight: 39 kg

DRUGS (9)
  1. ICL670A ICL+DISTAB [Suspect]
     Indication: IRON OVERLOAD
     Dosage: 1000 MG DAILY
     Route: 048
     Dates: start: 20090527, end: 20090707
  2. ICL670A ICL+DISTAB [Suspect]
     Indication: MYELODYSPLASTIC SYNDROME
     Dosage: 725 MG DAILY
     Route: 048
     Dates: start: 20090930, end: 20091124
  3. NEORAL [Suspect]
     Indication: IRON OVERLOAD
     Dosage: 100 MG DAILY
     Route: 048
     Dates: start: 20090527
  4. NEORAL [Suspect]
     Indication: MYELODYSPLASTIC SYNDROME
  5. PREDONINE [Concomitant]
     Indication: MYELODYSPLASTIC SYNDROME
     Dosage: 5 MG, UNK
     Route: 048
     Dates: start: 20090527, end: 20091124
  6. PRIMOBOLAN [Concomitant]
     Indication: MYELODYSPLASTIC SYNDROME
     Dosage: 20 MG, UNK
     Route: 048
     Dates: start: 20090527, end: 20091124
  7. BLOOD TRANSFUSION, AUXILIARY PRODUCTS [Concomitant]
     Dosage: UNK
     Dates: start: 20080326
  8. RED BLOOD CELLS [Concomitant]
     Dosage: 2 UNITS EVERY 2 WEEKS
     Dates: start: 20090527, end: 20091014
  9. RED BLOOD CELLS [Concomitant]
     Dosage: 4 UNITS EVERY 2 WEEKS
     Dates: start: 20091028, end: 20091125

REACTIONS (4)
  - CARDIAC FAILURE [None]
  - HYPOKALAEMIA [None]
  - PNEUMONIA [None]
  - RENAL IMPAIRMENT [None]
